FAERS Safety Report 8010661-6 (Version None)
Quarter: 2011Q4

REPORT INFORMATION
  Report Type: 
  Country: None (occurrence: None)
  Receive Date: 20111228
  Receipt Date: 20111219
  Transmission Date: 20120403
  Serious: Yes (Life-Threatening, Hospitalization, Disabling, Other)
  Sender: FDA-Public Use
  Company Number: JP-CELGENEUS-087-21880-11043300

PATIENT
  Sex: Male
  Weight: 61 kg

DRUGS (17)
  1. REVLIMID [Suspect]
     Dosage: 25 MILLIGRAM
     Route: 048
     Dates: start: 20101223, end: 20110112
  2. REVLIMID [Suspect]
     Dosage: 15 MILLIGRAM
     Route: 048
     Dates: start: 20110224, end: 20110316
  3. AMOXICILLIN [Concomitant]
     Indication: ERYSIPELAS
     Dosage: 1.5 GRAM
     Route: 048
     Dates: start: 20101026, end: 20101221
  4. URSO 250 [Concomitant]
     Dosage: 600 MILLIGRAM
     Route: 048
     Dates: start: 20041124, end: 20110608
  5. MAGNESIUM SULFATE [Concomitant]
     Indication: PROPHYLAXIS
     Dosage: 750 MILLIGRAM
     Route: 048
     Dates: start: 20100915, end: 20110118
  6. REVLIMID [Suspect]
     Dosage: 15 MILLIGRAM
     Route: 048
     Dates: start: 20110401, end: 20110420
  7. LANSOPRAZOLE [Concomitant]
     Indication: PROPHYLAXIS
     Dosage: 15 MILLIGRAM
     Route: 048
     Dates: start: 20101223, end: 20101231
  8. OPALMON [Concomitant]
     Dosage: 15 MICROGRAM
     Route: 048
     Dates: start: 20110517, end: 20110608
  9. ALDACTONE [Concomitant]
     Indication: HYPERTENSION
     Dosage: 50 MILLIGRAM
     Route: 048
     Dates: start: 20080619, end: 20110223
  10. REVLIMID [Suspect]
     Dosage: 10 MILLIGRAM
     Route: 048
     Dates: start: 20110512, end: 20110525
  11. LASIX [Concomitant]
     Dosage: 60 MILLIGRAM
     Route: 048
     Dates: start: 20070423, end: 20110118
  12. PROTECADIN [Concomitant]
     Indication: PROPHYLAXIS
     Dosage: 10 MILLIGRAM
     Route: 048
     Dates: start: 20100915, end: 20110608
  13. REVLIMID [Suspect]
     Indication: MULTIPLE MYELOMA
     Dosage: 25 MILLIGRAM
     Route: 048
     Dates: start: 20101028, end: 20101124
  14. REVLIMID [Suspect]
     Dosage: 25 MILLIGRAM
     Route: 048
     Dates: start: 20101125, end: 20101215
  15. PROHEPARUM [Concomitant]
     Dosage: 6 TABLET
     Route: 048
     Dates: start: 20041124, end: 20110608
  16. MAGNESIUM SULFATE [Concomitant]
     Dosage: 750 MILLIGRAM
     Route: 048
     Dates: start: 20110322, end: 20110618
  17. ASPIRIN [Concomitant]
     Indication: PROPHYLAXIS
     Dosage: 100 MILLIGRAM
     Route: 048
     Dates: start: 20100915, end: 20110608

REACTIONS (15)
  - PNEUMONIA [None]
  - ALANINE AMINOTRANSFERASE INCREASED [None]
  - ANAEMIA [None]
  - HAEMOGLOBIN DECREASED [None]
  - INFLUENZA [None]
  - NEUTROPHIL COUNT DECREASED [None]
  - ASPARTATE AMINOTRANSFERASE INCREASED [None]
  - DIARRHOEA [None]
  - STREPTOCOCCAL INFECTION [None]
  - NEUTROPENIA [None]
  - PLATELET COUNT DECREASED [None]
  - LEFT VENTRICULAR FAILURE [None]
  - ARTHRALGIA [None]
  - THROMBOCYTOPENIA [None]
  - NEISSERIA INFECTION [None]
